FAERS Safety Report 9119667 (Version 1)
Quarter: 2013Q1

REPORT INFORMATION
  Report Type: Spontaneous
  Country: US (occurrence: US)
  Receive Date: 20130226
  Receipt Date: 20130226
  Transmission Date: 20140127
  Serious: No
  Sender: FDA-Public Use
  Company Number: US-PFIZER INC-2013065791

PATIENT
  Age: 32 Year
  Sex: Female
  Weight: 86 kg

DRUGS (2)
  1. PRISTIQ [Suspect]
     Indication: ANXIETY
     Dosage: 50 MG, 1X/DAY
     Dates: start: 20120820, end: 2012
  2. PRISTIQ [Suspect]
     Dosage: 100 MG, 1X/DAY
     Dates: start: 2012

REACTIONS (1)
  - Alopecia [Not Recovered/Not Resolved]
